FAERS Safety Report 9608218 (Version 2)
Quarter: 2013Q4

REPORT INFORMATION
  Report Type: Report from Study
  Country: US (occurrence: US)
  Receive Date: 20131009
  Receipt Date: 20131018
  Transmission Date: 20140711
  Serious: Yes (Hospitalization)
  Sender: FDA-Public Use
  Company Number: US-ABBVIE-13P-163-1153245-00

PATIENT
  Age: 62 Year
  Sex: Male

DRUGS (10)
  1. HUMIRA [Suspect]
     Indication: PSORIASIS
     Dates: start: 2009, end: 201302
  2. HUMIRA [Suspect]
     Dates: start: 20130902
  3. HUMIRA [Suspect]
  4. ALLOPURINOL [Concomitant]
     Indication: GOUT
  5. ATENOLOL [Concomitant]
     Indication: HYPERTENSION
  6. BENAZEPRIL [Concomitant]
     Indication: HYPERTENSION
  7. ABILIFY [Concomitant]
     Indication: BIPOLAR DISORDER
     Dosage: DAILY
  8. LOVASTATIN [Concomitant]
     Indication: BLOOD CHOLESTEROL INCREASED
  9. FUROSEMIDE [Concomitant]
     Indication: CARDIAC FAILURE CONGESTIVE
  10. METFORMIN [Concomitant]
     Indication: DIABETES MELLITUS

REACTIONS (3)
  - Depression [Not Recovered/Not Resolved]
  - Blood pressure abnormal [Recovering/Resolving]
  - Psoriasis [Recovered/Resolved]
